FAERS Safety Report 9377733 (Version 1)
Quarter: 2013Q3

REPORT INFORMATION
  Report Type: Spontaneous
  Country: US (occurrence: US)
  Receive Date: 20130701
  Receipt Date: 20130701
  Transmission Date: 20140515
  Serious: Yes (Hospitalization)
  Sender: FDA-Public Use
  Company Number: US-AMGEN-USASP2013043790

PATIENT
  Age: 78 Year
  Sex: Female
  Weight: 99.77 kg

DRUGS (14)
  1. PROCRIT [Suspect]
     Indication: RENAL FAILURE CHRONIC
     Dosage: UNK
     Route: 058
     Dates: start: 201209
  2. PRIMIDONE [Concomitant]
     Indication: TREMOR
     Dosage: 250 MG, TWO TABLETS AT NIGHT
     Route: 048
  3. FAMOTIDINE [Concomitant]
     Dosage: 20 MG, BID
     Route: 048
  4. PROAIR HFA [Concomitant]
     Indication: CHRONIC OBSTRUCTIVE PULMONARY DISEASE
     Dosage: UNK UNK, AS NECESSARY
  5. SPIRIVA [Concomitant]
     Indication: CHRONIC OBSTRUCTIVE PULMONARY DISEASE
     Dosage: UNK UNK, QD
     Route: 065
  6. FUROSEMIDE [Concomitant]
     Dosage: 40 MG, QD
     Route: 065
  7. PAROXETINE [Concomitant]
     Dosage: 20 MG, QD
     Route: 048
  8. LEVOXYL [Concomitant]
     Dosage: 0.075 MG, QD AT NIGHT
     Route: 048
  9. HYDROCODONE [Concomitant]
     Indication: PAIN
     Dosage: 500 UNK, TID AS NEEDED
     Route: 048
  10. LORAZEPAM [Concomitant]
     Dosage: 0.5 MG, TID AS NEEDED
     Route: 048
  11. SIMVASTATIN [Concomitant]
     Indication: BLOOD CHOLESTEROL
     Dosage: 40 MG, QD AT BEDTIME
     Route: 048
  12. ASPIRIN [Concomitant]
     Dosage: 81 MG, QD
     Route: 048
  13. METOPROLOL SUCC CT [Concomitant]
     Indication: PRODUCT USED FOR UNKNOWN INDICATION
     Dosage: 50 MG, QD
     Route: 048
  14. GABAPENTIN [Concomitant]
     Dosage: 100 MG, QD AT NIGHT
     Route: 048

REACTIONS (3)
  - Urinary tract infection [Unknown]
  - Haemoglobin abnormal [Unknown]
  - Adverse event [Unknown]
